FAERS Safety Report 9853874 (Version 1)
Quarter: 2014Q1

REPORT INFORMATION
  Report Type: Spontaneous
  Country: FR (occurrence: SE)
  Receive Date: 20140129
  Receipt Date: 20140129
  Transmission Date: 20141002
  Serious: Yes (Hospitalization)
  Sender: FDA-Public Use
  Company Number: SE-FRI-1000053208

PATIENT
  Age: 55 Year
  Sex: Female

DRUGS (2)
  1. ACAMPROSATE [Suspect]
  2. NALTREXONE [Suspect]

REACTIONS (3)
  - Hepatitis toxic [Unknown]
  - Nausea [Unknown]
  - Vomiting [Unknown]
